FAERS Safety Report 7955008-6 (Version None)
Quarter: 2011Q4

REPORT INFORMATION
  Report Type: 
  Country: None (occurrence: None)
  Receive Date: 20111202
  Receipt Date: 20111124
  Transmission Date: 20120403
  Serious: Yes (Other)
  Sender: FDA-Public Use
  Company Number: PHHY2011KR105172

PATIENT
  Age: 42 Year
  Sex: Female

DRUGS (3)
  1. CARVEDILOL [Concomitant]
     Indication: HYPERTENSION
     Dosage: 25 MG, QD
  2. PREDNISOLONE [Suspect]
     Dosage: 10 MG, QD
  3. CYCLOSPORINE [Concomitant]
     Indication: IMMUNOSUPPRESSION
     Dosage: 250 MG, QD

REACTIONS (2)
  - CHORIORETINOPATHY [None]
  - CATARACT [None]
